FAERS Safety Report 5486987-7 (Version None)
Quarter: 2007Q4

REPORT INFORMATION
  Report Type: 
  Country: None (occurrence: None)
  Receive Date: 20071016
  Receipt Date: 20071005
  Transmission Date: 20080405
  Serious: Yes (Other)
  Sender: FDA-Public Use
  Company Number: HQWYE857306FEB04

PATIENT
  Sex: Female

DRUGS (1)
  1. PREMPRO [Suspect]
     Dosage: 0.625 MG /UNSPECIFIED DAILY
     Route: 048
     Dates: start: 19970301, end: 20010601

REACTIONS (1)
  - CONTRALATERAL BREAST CANCER [None]
